FAERS Safety Report 5601611-8 (Version None)
Quarter: 2008Q1

REPORT INFORMATION
  Report Type: 
  Country: None (occurrence: None)
  Receive Date: 20080124
  Receipt Date: 20080115
  Transmission Date: 20080703
  Serious: Yes (Other)
  Sender: FDA-Public Use
  Company Number: US-TYCO HEALTHCARE/MALLINCKRODT-T200800048

PATIENT

DRUGS (5)
  1. ACETAMINOPHEN AND OXYCODONE HCL [Suspect]
     Indication: PAIN
     Dosage: 5/325 MG, PRN
     Route: 048
     Dates: start: 20080102, end: 20080112
  2. OPANA ER [Suspect]
     Indication: PAIN
     Dosage: 40 MG, TID
     Dates: start: 20080104, end: 20080111
  3. LIDODERM [Suspect]
     Indication: PAIN
     Dosage: 3 PATCHES, QD
     Route: 062
     Dates: start: 20071201
  4. ACIPHEX [Concomitant]
     Indication: GASTROOESOPHAGEAL REFLUX DISEASE
     Dosage: 20 MG, QD
     Route: 048
  5. LUNESTA [Concomitant]
     Route: 048
     Dates: start: 20071101, end: 20080112

REACTIONS (6)
  - ANOREXIA [None]
  - CONVULSION [None]
  - INFLUENZA [None]
  - NAUSEA [None]
  - TINNITUS [None]
  - VOMITING [None]
